FAERS Safety Report 6804061-1 (Version None)
Quarter: 2010Q2

REPORT INFORMATION
  Report Type: 
  Country: None (occurrence: None)
  Receive Date: 20100628
  Receipt Date: 20060719
  Transmission Date: 20101027
  Serious: No
  Sender: FDA-Public Use
  Company Number: US-PFIZER INC-2006089368

PATIENT
  Sex: Female
  Weight: 80.74 kg

DRUGS (3)
  1. SUTENT [Suspect]
     Indication: SARCOMA
     Route: 048
     Dates: start: 20060623
  2. ALL OTHER THERAPEUTIC PRODUCTS [Concomitant]
     Route: 065
  3. NEXIUM [Concomitant]
     Route: 048

REACTIONS (2)
  - GLOSSITIS [None]
  - ORAL DISCOMFORT [None]
